FAERS Safety Report 9219153 (Version 1)
Quarter: 2013Q2

REPORT INFORMATION
  Report Type: Spontaneous
  Country: GB (occurrence: GB)
  Receive Date: 20130409
  Receipt Date: 20130409
  Transmission Date: 20140414
  Serious: Yes (Other)
  Sender: FDA-Public Use
  Company Number: GB-BAYER-2013-043159

PATIENT
  Age: 28 Year
  Sex: Female

DRUGS (1)
  1. CANESTEN [Suspect]
     Dosage: UNK
     Route: 048
     Dates: start: 20130330, end: 20130330

REACTIONS (7)
  - Haemorrhage [None]
  - Ocular hyperaemia [None]
  - Chest discomfort [None]
  - Cough [None]
  - Expired drug administered [None]
  - Incorrect route of drug administration [None]
  - Wheezing [None]
